FAERS Safety Report 8089270-9 (Version None)
Quarter: 2012Q1

REPORT INFORMATION
  Report Type: 
  Country: None (occurrence: None)
  Receive Date: 20120128
  Receipt Date: 20110616
  Transmission Date: 20120608
  Serious: No
  Sender: FDA-Public Use
  Company Number: US-ABBOTT-11P-163-0717420-00

PATIENT
  Age: 77 Year
  Sex: Female

DRUGS (13)
  1. METHOTREXATE [Concomitant]
     Indication: PRODUCT USED FOR UNKNOWN INDICATION
  2. PROTONIX [Concomitant]
     Indication: GASTROOESOPHAGEAL REFLUX DISEASE
  3. CELEBREX [Concomitant]
     Indication: RHEUMATOID ARTHRITIS
  4. PLAVIX [Concomitant]
     Indication: TRANSIENT ISCHAEMIC ATTACK
  5. VASOTEC [Concomitant]
     Indication: HYPERTENSION
  6. MIRAPEX [Concomitant]
     Indication: RESTLESS LEGS SYNDROME
  7. TYLENOL W/ CODEINE [Concomitant]
     Indication: ARTHRALGIA
  8. ASPIRIN [Concomitant]
     Indication: PRODUCT USED FOR UNKNOWN INDICATION
  9. RECLAST [Concomitant]
     Indication: PRODUCT USED FOR UNKNOWN INDICATION
     Route: 042
  10. NORVASC [Concomitant]
     Indication: HYPERTENSION
  11. FOLIC ACID [Concomitant]
     Indication: PRODUCT USED FOR UNKNOWN INDICATION
  12. HUMIRA [Suspect]
     Indication: RHEUMATOID ARTHRITIS
     Dates: start: 20020101
  13. CLEOCIN HYDROCHLORIDE [Concomitant]
     Indication: PRODUCT USED FOR UNKNOWN INDICATION
     Dosage: 5 DAYS EACH MONTH
     Route: 067

REACTIONS (4)
  - INCORRECT DOSE ADMINISTERED [None]
  - INJECTION SITE HAEMORRHAGE [None]
  - INJECTION SITE PAIN [None]
  - DEVICE MALFUNCTION [None]
